FAERS Safety Report 15406487 (Version 1)
Quarter: 2018Q3

REPORT INFORMATION
  Report Type: Other
  Country: DE (occurrence: DE)
  Receive Date: 20180920
  Receipt Date: 20180920
  Transmission Date: 20181010
  Serious: Yes (Death)
  Sender: FDA-Public Use
  Company Number: DE-GENUS_LIFESCIENCES-USA-POI0580201800111

PATIENT
  Age: 53 Year
  Sex: Female

DRUGS (2)
  1. PANCURONIUM [Concomitant]
     Active Substance: PANCURONIUM
     Indication: DYSTONIA
     Route: 042
     Dates: start: 2006, end: 2016
  2. OXYCODONE HCL CAPSULES [Suspect]
     Active Substance: OXYCODONE HYDROCHLORIDE
     Dates: end: 2016

REACTIONS (4)
  - Respiratory arrest [Fatal]
  - Dystonia [Fatal]
  - Suicide attempt [Fatal]
  - Muscle spasms [Fatal]

NARRATIVE: CASE EVENT DATE: 2016
